FAERS Safety Report 5767117-0 (Version None)
Quarter: 2008Q2

REPORT INFORMATION
  Report Type: 
  Country: None (occurrence: None)
  Receive Date: 20080609
  Receipt Date: 20080526
  Transmission Date: 20081010
  Serious: Yes (Life-Threatening, Hospitalization)
  Sender: FDA-Public Use
  Company Number: 20080148 /

PATIENT
  Age: 55 Year
  Sex: Female

DRUGS (7)
  1. VENOFER [Suspect]
     Indication: DRUG USE FOR UNKNOWN INDICATION
     Dosage: 100 MG INTRAVENOUS
     Route: 042
     Dates: start: 20080319
  2. POTASSIUM CHLORIDE [Concomitant]
  3. PRAZEPAM [Concomitant]
  4. FOLIC ACID [Concomitant]
  5. CLONAZEPAM [Concomitant]
  6. VINORELBINE [Concomitant]
  7. PEGFILGRASTIM [Concomitant]

REACTIONS (2)
  - FEBRILE BONE MARROW APLASIA [None]
  - INFECTION [None]
